FAERS Safety Report 13435929 (Version 1)
Quarter: 2017Q2

REPORT INFORMATION
  Report Type: Spontaneous
  Country: US (occurrence: US)
  Receive Date: 20170412
  Receipt Date: 20170412
  Transmission Date: 20170830
  Serious: Yes (Life-Threatening, Disabling, Other)
  Sender: FDA-Public Use
  Company Number: None

PATIENT
  Age: 34 Year
  Sex: Female
  Weight: 54 kg

DRUGS (5)
  1. CIPROFLOXACIN. [Suspect]
     Active Substance: CIPROFLOXACIN
     Indication: URINARY TRACT INFECTION
     Dosage: ?          QUANTITY:5 CAPSULE(S);?
     Route: 048
  2. FISH OIL [Concomitant]
     Active Substance: FISH OIL
  3. NOVALOG INSULIN [Concomitant]
  4. BIRTH CONTROL PILL [Concomitant]
     Active Substance: UNSPECIFIED INGREDIENT
  5. MULTIVITAMIN [Concomitant]
     Active Substance: VITAMINS

REACTIONS (11)
  - Back pain [None]
  - Heart injury [None]
  - Anxiety [None]
  - Insomnia [None]
  - Renal injury [None]
  - Chest pain [None]
  - Muscle rupture [None]
  - Paraesthesia [None]
  - Lymphadenopathy [None]
  - Neuropathy peripheral [None]
  - Chondropathy [None]

NARRATIVE: CASE EVENT DATE: 20170112
